FAERS Safety Report 7917728-9 (Version None)
Quarter: 2011Q4

REPORT INFORMATION
  Report Type: 
  Country: None (occurrence: None)
  Receive Date: 20111114
  Receipt Date: 20111026
  Transmission Date: 20120403
  Serious: Yes (Other)
  Sender: FDA-Public Use
  Company Number: 2011SP052436

PATIENT
  Age: 21 Month
  Sex: Male
  Weight: 11.7 kg

DRUGS (2)
  1. NASONEX [Suspect]
     Indication: NASAL CONGESTION
     Dosage: NAS
     Route: 045
     Dates: start: 20100101, end: 20111026
  2. SINGULAIR [Suspect]
     Indication: RHINITIS ALLERGIC
     Dosage: QD; PO
     Route: 048
     Dates: start: 20110701, end: 20111026

REACTIONS (2)
  - DIARRHOEA [None]
  - FAECES DISCOLOURED [None]
